FAERS Safety Report 12325850 (Version 1)
Quarter: 2016Q2

REPORT INFORMATION
  Report Type: Spontaneous
  Country: US (occurrence: US)
  Receive Date: 20160503
  Receipt Date: 20160503
  Transmission Date: 20160815
  Serious: Yes (Death, Other)
  Sender: FDA-Public Use
  Company Number: US-CIPLA LTD.-2016US04405

PATIENT

DRUGS (7)
  1. FLUOROURACIL. [Suspect]
     Active Substance: FLUOROURACIL
     Indication: COLORECTAL CANCER METASTATIC
     Dosage: UNK, TWO-WEEKLY CYCLES
     Route: 042
     Dates: start: 201012
  2. RAMUCIRUMAB [Suspect]
     Active Substance: RAMUCIRUMAB
     Indication: COLORECTAL CANCER METASTATIC
     Dosage: UNK, TWO-WEEKLY CYCLES (UNTIL CYCLE 34)
     Route: 065
     Dates: end: 201301
  3. LEUCOVORIN. [Suspect]
     Active Substance: LEUCOVORIN
     Indication: COLORECTAL CANCER METASTATIC
     Dosage: UNK, TWO-WEEKLY CYCLES
     Route: 042
     Dates: start: 201012
  4. AVASTIN [Suspect]
     Active Substance: BEVACIZUMAB
     Indication: COLORECTAL CANCER METASTATIC
     Dosage: UNK, TWO-WEEKLY CYCLES
     Route: 042
     Dates: start: 201012
  5. CETUXIMAB [Suspect]
     Active Substance: CETUXIMAB
     Indication: COLORECTAL CANCER METASTATIC
     Dosage: UNK, TWO-WEEKLY CYCLES (UNTIL CYCLE 34)
     Route: 065
     Dates: end: 201301
  6. IRINOTECAN [Suspect]
     Active Substance: IRINOTECAN
     Indication: COLORECTAL CANCER METASTATIC
     Dosage: UNK, TWO-WEEKLY CYCLES (DISCONTINUED DURING CYCLE 24)
     Route: 065
  7. OXALIPLATIN. [Suspect]
     Active Substance: OXALIPLATIN
     Indication: COLORECTAL CANCER METASTATIC
     Dosage: UNK
     Route: 042
     Dates: start: 201012

REACTIONS (6)
  - Neutropenia [Unknown]
  - Death [Fatal]
  - Rash [Unknown]
  - Mental status changes [Unknown]
  - Disease progression [Unknown]
  - Injection site hypersensitivity [Unknown]

NARRATIVE: CASE EVENT DATE: 201108
